FAERS Safety Report 15998579 (Version 1)
Quarter: 2019Q1

REPORT INFORMATION
  Report Type: Spontaneous
  Country: US (occurrence: US)
  Receive Date: 20190223
  Receipt Date: 20190223
  Transmission Date: 20190418
  Serious: No
  Sender: FDA-Public Use
  Company Number: US-TEVA-2019-US-1014536

PATIENT
  Sex: Female

DRUGS (1)
  1. INFANTS IBUPROFEN [Suspect]
     Active Substance: IBUPROFEN
     Dosage: 100 MG / 5 ML
     Route: 065

REACTIONS (2)
  - Drug ineffective [Unknown]
  - Diarrhoea [Unknown]
